FAERS Safety Report 22274566 (Version 2)
Quarter: 2023Q2

REPORT INFORMATION
  Report Type: Report from Study
  Country: US (occurrence: US)
  Receive Date: 20230502
  Receipt Date: 20230522
  Transmission Date: 20230721
  Serious: Yes (Hospitalization, Other)
  Sender: FDA-Public Use
  Company Number: US-TAKEDA-2023TUS042207

PATIENT
  Sex: Female

DRUGS (5)
  1. PONATINIB [Suspect]
     Active Substance: PONATINIB
     Indication: Chronic myeloid leukaemia
     Dosage: 15 MILLIGRAM, QD
     Route: 048
  2. PONATINIB [Suspect]
     Active Substance: PONATINIB
     Indication: Deficiency anaemia
  3. IBUPROFEN [Concomitant]
     Active Substance: IBUPROFEN
     Dosage: UNK
     Route: 065
  4. PRAVASTATIN SODIUM [Concomitant]
     Active Substance: PRAVASTATIN SODIUM
     Dosage: UNK
     Route: 065
  5. MELOXICAM [Concomitant]
     Active Substance: MELOXICAM
     Dosage: UNK
     Route: 065

REACTIONS (3)
  - Neuroendocrine tumour of the lung [Recovering/Resolving]
  - Myalgia [Unknown]
  - Product dose omission issue [Unknown]
